FAERS Safety Report 6148189-0 (Version None)
Quarter: 2009Q2

REPORT INFORMATION
  Report Type: 
  Country: None (occurrence: None)
  Receive Date: 20090408
  Receipt Date: 20090327
  Transmission Date: 20091009
  Serious: Yes (Hospitalization)
  Sender: FDA-Public Use
  Company Number: US-ROCHE-624454

PATIENT
  Sex: Female

DRUGS (3)
  1. PEG-INTERFERON A-2A (RO 25-8310) [Suspect]
     Indication: HEPATITIS C
     Dosage: FORM: PFS
     Route: 065
     Dates: start: 20090108
  2. RIBAPAK [Suspect]
     Indication: HEPATITIS C
     Route: 065
     Dates: start: 20090108
  3. PEG-INTRON [Suspect]
     Indication: HEPATITIS C
     Route: 065
     Dates: start: 20080101

REACTIONS (1)
  - ASTHMA [None]
